FAERS Safety Report 9149836 (Version 1)
Quarter: 2013Q1

REPORT INFORMATION
  Report Type: Spontaneous
  Country: US (occurrence: None)
  Receive Date: 20130201
  Receipt Date: 20130201
  Transmission Date: 20140127
  Serious: Yes (Hospitalization)
  Sender: FDA-Public Use
  Company Number: 1579458

PATIENT
  Age: 65 Year
  Sex: Female

DRUGS (6)
  1. CARBOPLATIN [Suspect]
     Route: 033
  2. CISPLATIN [Suspect]
     Route: 033
  3. DOXORUBICIN [Suspect]
  4. BEVACIZUMAB [Suspect]
  5. GEMCITABINE [Suspect]
  6. PACLITAXEL [Concomitant]

REACTIONS (13)
  - Renal failure chronic [None]
  - Thrombotic microangiopathy [None]
  - Headache [None]
  - Oedema [None]
  - Dyspnoea [None]
  - Renal tubular atrophy [None]
  - Kidney fibrosis [None]
  - Disease progression [None]
  - Convulsion [None]
  - Encephalopathy [None]
  - Ischaemia [None]
  - Endocarditis noninfective [None]
  - Ovarian cancer [None]
